FAERS Safety Report 8613902-7 (Version None)
Quarter: 2012Q3

REPORT INFORMATION
  Report Type: 
  Country: None (occurrence: None)
  Receive Date: 20120823
  Receipt Date: 20010813
  Transmission Date: 20120928
  Serious: No
  Sender: FDA-Public Use
  Company Number: US-009507513-01081433

PATIENT

DRUGS (6)
  1. CENESTIN [Concomitant]
  2. FOSAMAX [Suspect]
     Dosage: 70 MG, QW
     Route: 048
     Dates: start: 20010731, end: 20010807
  3. IBUPROFEN [Concomitant]
  4. NORVASC [Concomitant]
  5. PROMETRIUM [Concomitant]
  6. LIPITOR [Concomitant]

REACTIONS (1)
  - RASH [None]
